FAERS Safety Report 6882319-8 (Version None)
Quarter: 2010Q3

REPORT INFORMATION
  Report Type: 
  Country: None (occurrence: None)
  Receive Date: 20100729
  Receipt Date: 20090929
  Transmission Date: 20110219
  Serious: No
  Sender: FDA-Public Use
  Company Number: US-MYLANLABS-2009S1017024

PATIENT
  Age: 69 Year
  Sex: Female

DRUGS (5)
  1. CYCLOBENZAPRINE HYDROCHLORIDE [Suspect]
     Indication: MUSCLE SPASMS
     Route: 048
     Dates: end: 20090825
  2. CYCLOBENZAPRINE HYDROCHLORIDE [Suspect]
     Route: 048
     Dates: start: 20090925
  3. LEVOTHYROXINE SODIUM [Suspect]
     Indication: THYROID DISORDER
     Route: 048
     Dates: start: 20090601, end: 20090825
  4. CALCIUM 600 PLUS VITAMIN D [Suspect]
     Indication: MINERAL SUPPLEMENTATION
     Route: 048
     Dates: end: 20090825
  5. CALCIUM 600 PLUS VITAMIN D [Suspect]
     Route: 048
     Dates: end: 20090825

REACTIONS (2)
  - REACTION TO DRUG EXCIPIENTS [None]
  - URTICARIA [None]
